FAERS Safety Report 5940529-8 (Version None)
Quarter: 2008Q4

REPORT INFORMATION
  Report Type: 
  Country: None (occurrence: None)
  Receive Date: 20081030
  Receipt Date: 20081021
  Transmission Date: 20090506
  Serious: Yes (Hospitalization)
  Sender: FDA-Public Use
  Company Number: GXKR2008GB10046

PATIENT
  Sex: Female

DRUGS (2)
  1. RAMIPRIL [Suspect]
  2. MYOCRISIN (SODIUM AUROTHIOMALATE) [Suspect]
     Dosage: 10 MG, INJECTION NOS
     Route: 042

REACTIONS (6)
  - BLOOD PRESSURE DECREASED [None]
  - BURNING SENSATION [None]
  - DRUG INTERACTION [None]
  - NAUSEA [None]
  - RASH [None]
  - SYNCOPE [None]
